FAERS Safety Report 13031758 (Version 1)
Quarter: 2016Q4

REPORT INFORMATION
  Report Type: Spontaneous
  Country: US (occurrence: US)
  Receive Date: 20161215
  Receipt Date: 20161215
  Transmission Date: 20170207
  Serious: No
  Sender: FDA-Public Use
  Company Number: US-ENDO PHARMACEUTICALS INC.-2015-004922

PATIENT
  Sex: Female

DRUGS (1)
  1. RHEUMATREX [Suspect]
     Active Substance: METHOTREXATE SODIUM
     Indication: PRODUCT USED FOR UNKNOWN INDICATION
     Dosage: GRADUATED DOSING REGIMEN OF 3 TABLETS WEEKLY, TO 4 TABLETS WEEKLY AND FINALLY TO 6 TABLETS WEEKLY
     Route: 048

REACTIONS (4)
  - Drug ineffective [Unknown]
  - Abdominal discomfort [Unknown]
  - Vomiting [Unknown]
  - Nausea [Unknown]
